FAERS Safety Report 23446591 (Version 1)
Quarter: 2024Q1

REPORT INFORMATION
  Report Type: Spontaneous
  Country: HU (occurrence: HU)
  Receive Date: 20240126
  Receipt Date: 20240126
  Transmission Date: 20240410
  Serious: Yes (Hospitalization, Other)
  Sender: FDA-Public Use
  Company Number: HU-PFIZER INC-PV202400009378

PATIENT
  Age: 81 Year
  Sex: Female

DRUGS (1)
  1. MEDROL [Suspect]
     Active Substance: METHYLPREDNISOLONE
     Indication: Rheumatic disorder
     Dosage: A REDUCING DOSE WAS ALREADY USED

REACTIONS (3)
  - Skin necrosis [Recovering/Resolving]
  - Skin laceration [Recovering/Resolving]
  - Skin fragility [Unknown]
